FAERS Safety Report 14304695 (Version 1)
Quarter: 2017Q4

REPORT INFORMATION
  Report Type: Spontaneous
  Country: JP (occurrence: JP)
  Receive Date: 20171219
  Receipt Date: 20171219
  Transmission Date: 20180321
  Serious: Yes (Hospitalization, Other)
  Sender: FDA-Public Use
  Company Number: JP-OTSUKA-JP-2013-10572

PATIENT
  Sex: Female

DRUGS (5)
  1. ABILIFY [Suspect]
     Active Substance: ARIPIPRAZOLE
     Indication: SCHIZOPHRENIA
     Dosage: 12 MG, BID
     Route: 048
     Dates: end: 20130226
  2. ZYPREXA [Suspect]
     Active Substance: OLANZAPINE
     Indication: SCHIZOPHRENIA
     Dosage: 20 MG, QD
     Route: 048
     Dates: end: 20130226
  3. AKIRIDEN [Suspect]
     Active Substance: BIPERIDEN
     Indication: SCHIZOPHRENIA
     Dosage: 3 MG, BID
     Route: 048
     Dates: end: 20130226
  4. LOSIZOPILON [Suspect]
     Active Substance: ZOTEPINE
     Indication: SCHIZOPHRENIA
     Dosage: 100 MG, QD
     Route: 048
     Dates: end: 20130226
  5. ZYPREXA [Suspect]
     Active Substance: OLANZAPINE
     Dosage: 10 MG, QD
     Route: 048
     Dates: start: 20130308

REACTIONS (2)
  - Intestinal obstruction [Unknown]
  - Neuroleptic malignant syndrome [Recovering/Resolving]
